FAERS Safety Report 14573351 (Version 2)
Quarter: 2018Q4

REPORT INFORMATION
  Report Type: Spontaneous
  Country: IT (occurrence: IT)
  Receive Date: 20180226
  Receipt Date: 20181130
  Transmission Date: 20190204
  Serious: Yes (Hospitalization)
  Sender: FDA-Public Use
  Company Number: IT-TEVA-2018-IT-859518

PATIENT
  Age: 70 Year
  Sex: Male

DRUGS (5)
  1. CANRENONE [Concomitant]
     Active Substance: CANRENONE
     Indication: CONGESTIVE CARDIOMYOPATHY
     Route: 048
     Dates: start: 20160101
  2. BISOPROLOL [Suspect]
     Active Substance: BISOPROLOL
     Indication: CONGESTIVE CARDIOMYOPATHY
     Route: 048
     Dates: start: 20171128, end: 20171130
  3. CANDESARTAN. [Concomitant]
     Active Substance: CANDESARTAN
     Indication: CONGESTIVE CARDIOMYOPATHY
     Route: 048
     Dates: start: 20160101
  4. AMIODARONE [Suspect]
     Active Substance: AMIODARONE
     Indication: CONGESTIVE CARDIOMYOPATHY
     Route: 048
     Dates: start: 20171128, end: 20171130
  5. MINIAS [Suspect]
     Active Substance: LORMETAZEPAM
     Indication: INSOMNIA
     Route: 048
     Dates: start: 20171130, end: 20171130

REACTIONS (3)
  - Intentional overdose [Recovered/Resolved]
  - Sopor [Recovered/Resolved]
  - Intentional self-injury [Recovered/Resolved]

NARRATIVE: CASE EVENT DATE: 20171130
